FAERS Safety Report 19511299 (Version 5)
Quarter: 2021Q3

REPORT INFORMATION
  Report Type: Spontaneous
  Country: US (occurrence: US)
  Receive Date: 20210709
  Receipt Date: 20210916
  Transmission Date: 20211014
  Serious: Yes (Hospitalization)
  Sender: FDA-Public Use
  Company Number: US-SAGE-2021SAGE000068

PATIENT
  Age: 33 Year
  Sex: Female

DRUGS (2)
  1. ZULRESSO [Suspect]
     Active Substance: BREXANOLONE
     Dosage: UNK
     Route: 042
     Dates: start: 20210819, end: 20210822
  2. ZULRESSO [Suspect]
     Active Substance: BREXANOLONE
     Indication: PERINATAL DEPRESSION
     Dosage: UNK
     Route: 042
     Dates: start: 20210626, end: 20210626

REACTIONS (2)
  - Hypoxia [Recovered/Resolved]
  - Off label use [Recovered/Resolved]

NARRATIVE: CASE EVENT DATE: 20210626
